FAERS Safety Report 20070128 (Version 1)
Quarter: 2021Q4

REPORT INFORMATION
  Report Type: Spontaneous
  Country: CA (occurrence: CA)
  Receive Date: 20211115
  Receipt Date: 20211115
  Transmission Date: 20220303
  Serious: Yes (Other)
  Sender: FDA-Public Use
  Company Number: CA-TEVA-2021-CA-1976699

PATIENT
  Sex: Female

DRUGS (9)
  1. METHOTREXATE [Suspect]
     Active Substance: METHOTREXATE
     Route: 065
  2. METHOTREXATE [Suspect]
     Active Substance: METHOTREXATE
     Route: 065
  3. RUXIENCE [Suspect]
     Active Substance: RITUXIMAB-PVVR
     Indication: Rheumatoid arthritis
     Route: 042
  4. HYDROXYCHLOROQUINE SULFATE [Suspect]
     Active Substance: HYDROXYCHLOROQUINE SULFATE
     Route: 065
  5. AZATHIOPRINE [Concomitant]
     Active Substance: AZATHIOPRINE
     Route: 065
  6. MYCOPHENOLATE MOFETIL [Concomitant]
     Active Substance: MYCOPHENOLATE MOFETIL
     Route: 048
  7. PREDNISONE [Concomitant]
     Active Substance: PREDNISONE
     Indication: Rheumatoid arthritis
     Route: 065
  8. PREDNISONE [Concomitant]
     Active Substance: PREDNISONE
     Route: 065
  9. TACROLIMUS [Concomitant]
     Active Substance: TACROLIMUS
     Dosage: 2 MILLIGRAM DAILY;
     Route: 048

REACTIONS (17)
  - Arthralgia [Recovered/Resolved]
  - Cytopenia [Recovered/Resolved]
  - Double stranded DNA antibody positive [Recovered/Resolved]
  - Haematuria [Recovered/Resolved]
  - Joint swelling [Recovered/Resolved]
  - Lupus vulgaris [Recovered/Resolved]
  - Mouth ulceration [Recovered/Resolved]
  - Musculoskeletal stiffness [Recovered/Resolved]
  - Neuropsychiatric lupus [Recovered/Resolved]
  - Pancytopenia [Recovered/Resolved]
  - Proteinuria [Recovered/Resolved]
  - Rash [Recovered/Resolved]
  - Rash [Recovered/Resolved]
  - Retinal vasculitis [Recovered/Resolved]
  - Rheumatoid arthritis [Recovered/Resolved]
  - Vasculitic ulcer [Recovered/Resolved]
  - Therapeutic response unexpected [Recovered/Resolved]
